FAERS Safety Report 6665622-6 (Version None)
Quarter: 2010Q2

REPORT INFORMATION
  Report Type: 
  Country: None (occurrence: None)
  Receive Date: 20100402
  Receipt Date: 20100329
  Transmission Date: 20101027
  Serious: Yes (Hospitalization, Other)
  Sender: FDA-Public Use
  Company Number: US-ELI_LILLY_AND_COMPANY-US200710000052

PATIENT
  Sex: Female
  Weight: 190.48 kg

DRUGS (19)
  1. BYETTA [Suspect]
     Indication: TYPE 2 DIABETES MELLITUS
     Dosage: 5 UG, 2/D
     Route: 058
     Dates: start: 20070701, end: 20070801
  2. BYETTA [Suspect]
     Dosage: 10 UG, 2/D
     Route: 058
     Dates: start: 20070801
  3. BYETTA [Suspect]
     Dosage: 10 UG, 2/D
     Route: 058
     Dates: start: 20070801
  4. BYETTA [Suspect]
     Dosage: 10 UG, 2/D
     Route: 058
  5. METFORMIN (GLUCOPHAGE) [Concomitant]
     Indication: TYPE 2 DIABETES MELLITUS
     Dosage: 1000 MG, 2/D
     Route: 048
  6. GLIMEPIRIDE [Concomitant]
     Indication: TYPE 2 DIABETES MELLITUS
     Dosage: 4 MG, 2/D
     Route: 048
  7. AMLODIPINE [Concomitant]
     Dosage: 10 MG, DAILY (1/D)
     Route: 048
  8. ASPIRIN [Concomitant]
     Dosage: 81 MG, DAILY (1/D)
     Route: 048
  9. QVAR 40 [Concomitant]
     Indication: ASTHMA
  10. CALCIUM CARBONATE + VITAMIN D [Concomitant]
     Dosage: UNK, DAILY (1/D)
     Route: 048
  11. FEXOFENADINE [Concomitant]
     Dosage: UNK, DAILY (1/D)
     Route: 048
  12. LISINOPRIL [Concomitant]
     Dosage: 5 MG, DAILY (1/D)
     Route: 048
  13. MELOXICAM [Concomitant]
     Dosage: 15 MG, DAILY (1/D)
     Route: 048
  14. METOPROLOL TARTRATE [Concomitant]
     Dosage: 25 MBQ, DAILY (1/D)
     Route: 048
  15. PROTONIX [Concomitant]
     Dosage: 40 MG, 2/D
     Route: 048
  16. SEREVENT [Concomitant]
     Indication: ASTHMA
  17. SINGULAIR [Concomitant]
     Indication: ASTHMA
     Dosage: UNK, DAILY (1/D)
     Route: 048
  18. VITAMIN D [Concomitant]
     Dosage: UNK, DAILY (1/D)
     Route: 048
  19. WARFARIN SODIUM [Concomitant]
     Dosage: UNK, DAILY (1/D)
     Route: 048

REACTIONS (11)
  - ANAPHYLACTIC REACTION [None]
  - ASTHMA [None]
  - BLOOD GLUCOSE INCREASED [None]
  - CELLULITIS [None]
  - DRUG INEFFECTIVE [None]
  - HOSPITALISATION [None]
  - KIDNEY INFECTION [None]
  - NAUSEA [None]
  - NOSOCOMIAL INFECTION [None]
  - RETCHING [None]
  - SEPSIS [None]
